FAERS Safety Report 4721775-8 (Version None)
Quarter: 2005Q3

REPORT INFORMATION
  Report Type: 
  Country: None (occurrence: None)
  Receive Date: 20050721
  Receipt Date: 20050405
  Transmission Date: 20060218
  Serious: No
  Sender: FDA-Public Use
  Company Number: US-BRISTOL-MYERS SQUIBB COMPANY-12928636

PATIENT
  Age: 88 Year
  Sex: Male
  Weight: 79 kg

DRUGS (16)
  1. COUMADIN [Suspect]
     Indication: ATRIAL FIBRILLATION
     Route: 048
  2. PLAVIX [Suspect]
     Indication: ATRIAL FIBRILLATION
     Route: 048
  3. DIOVAN [Concomitant]
     Indication: ATRIAL FIBRILLATION
     Route: 048
  4. TOPROL-XL [Concomitant]
     Route: 048
  5. FUROSEMIDE [Concomitant]
     Dosage: 1 TABLET ONCE A DAY FOR YEARS
     Route: 048
  6. LUPRON [Concomitant]
     Dosage: EVERY 4 MONTHS FOR 10 YEARS (GIVEN BY UROLOGIST).
     Route: 030
  7. CASODEX [Concomitant]
     Route: 048
  8. MULTI-VITAMIN [Concomitant]
     Dosage: 1 TABLET ONCE A DAY FOR YEARS
     Route: 048
  9. COENZYME Q10 [Concomitant]
     Dosage: 1 TABLET ONCE A DAY FOR YEARS
     Route: 048
  10. HAWTHORN BERRY EXTRACT [Concomitant]
     Dosage: 1 CAPSULE ONCE A DAY FOR YEARS
     Route: 048
  11. VITAMIN E [Concomitant]
     Dosage: 1 CAPSULE ONCE A DAY FOR YEARS
     Route: 048
  12. SELENIUM SULFIDE [Concomitant]
     Dosage: 1 CAPSULE ONCE A DAY FOR YEARS
     Route: 048
  13. FOLIC ACID [Concomitant]
     Route: 048
  14. GARLIC [Concomitant]
     Route: 048
  15. VITAMIN B-12 [Concomitant]
     Route: 048
  16. ACIDOPHILUS [Concomitant]
     Dosage: 1 CAPSULE ONCE A DAY
     Route: 048

REACTIONS (1)
  - EPISTAXIS [None]
